FAERS Safety Report 9287612 (Version 3)
Quarter: 2013Q2

REPORT INFORMATION
  Report Type: Spontaneous
  Country: JP (occurrence: JP)
  Receive Date: 20130514
  Receipt Date: 20130612
  Transmission Date: 20140414
  Serious: Yes (Death, Hospitalization, Other)
  Sender: FDA-Public Use
  Company Number: JP-009507513-1305JPN006686

PATIENT
  Age: 61 Year
  Sex: Male
  Weight: 62 kg

DRUGS (13)
  1. JANUVIA TABLETS 50MG [Suspect]
     Indication: DIABETES MELLITUS
     Dosage: 50 MG, QD
     Route: 048
     Dates: end: 20130329
  2. AZILVA [Suspect]
     Indication: HYPERTENSION
     Dosage: 40 MG, QD
     Route: 048
     Dates: start: 20130214, end: 20130314
  3. OLMETEC [Suspect]
     Indication: HYPERTENSION
     Dosage: 20 MG, BID
     Route: 048
     Dates: end: 20130130
  4. MAINTATE [Concomitant]
     Indication: HYPERTENSION
     Dosage: 2.5 MG, BID
     Route: 048
     Dates: start: 20130228, end: 20130328
  5. CALBLOCK [Concomitant]
     Indication: HYPERTENSION
     Dosage: 16 MG, QD
     Route: 048
     Dates: start: 20130214, end: 20130311
  6. FEBURIC [Concomitant]
     Indication: HYPERURICAEMIA
     Dosage: 10 MG, QD
     Route: 048
     Dates: end: 20130330
  7. ADECUT [Concomitant]
     Indication: HYPERTENSION
     Dosage: 30 MG, QD
     Route: 048
     Dates: start: 20130131, end: 20130314
  8. LANTUS [Concomitant]
     Indication: DIABETES MELLITUS
     Dosage: 14(UNDER1000) UNIT
     Route: 058
     Dates: end: 20130328
  9. ARTIST [Concomitant]
     Indication: HYPERTENSION
     Dosage: 2.5 MG, QD
     Route: 048
     Dates: end: 20130130
  10. ARTIST [Concomitant]
     Dosage: 5 MG, QD
     Route: 048
     Dates: start: 20130131, end: 20130227
  11. FUROSEMIDE [Concomitant]
     Indication: HYPERTENSION
     Dosage: 20 MG, QD
     Route: 048
     Dates: end: 20130328
  12. KALIMATE [Concomitant]
     Indication: HYPERKALAEMIA
     Dosage: 5 MG, TID
     Route: 048
     Dates: end: 20130314
  13. MAGLAX [Concomitant]
     Indication: CONSTIPATION
     Dosage: 250 MG, TID
     Route: 048
     Dates: end: 20130314

REACTIONS (6)
  - Interstitial lung disease [Fatal]
  - Cardiac failure [Recovering/Resolving]
  - Influenza [Recovering/Resolving]
  - Dehydration [Unknown]
  - Delirium [Unknown]
  - Renal impairment [Unknown]
